FAERS Safety Report 4324354-X (Version None)
Quarter: 2004Q1

REPORT INFORMATION
  Report Type: 
  Country: None (occurrence: None)
  Receive Date: 20040326
  Receipt Date: 20040203
  Transmission Date: 20041129
  Serious: No
  Sender: FDA-Public Use
  Company Number: US-GLAXOSMITHKLINE-A0496314A

PATIENT
  Age: 59 Year
  Sex: Female

DRUGS (11)
  1. ADVAIR DISKUS 100/50 [Suspect]
     Indication: ASTHMA
     Dosage: 1PUFF TWICE PER DAY
     Route: 055
     Dates: start: 20031201
  2. ZANTAC [Concomitant]
  3. BENADRYL [Concomitant]
  4. VASOTEC [Concomitant]
  5. PREDNISONE [Concomitant]
  6. LEVSIN PB [Concomitant]
  7. TYLENOL (CAPLET) [Concomitant]
  8. NORGESIC [Concomitant]
  9. VIT E [Concomitant]
  10. VIT B [Concomitant]
  11. CALCIUM [Concomitant]

REACTIONS (2)
  - DRUG INEFFECTIVE [None]
  - PHARMACEUTICAL PRODUCT COMPLAINT [None]
